FAERS Safety Report 24148502 (Version 7)
Quarter: 2025Q2

REPORT INFORMATION
  Report Type: Spontaneous
  Country: DE (occurrence: DE)
  Receive Date: 20240729
  Receipt Date: 20250415
  Transmission Date: 20250717
  Serious: Yes (Hospitalization)
  Sender: MYLAN
  Company Number: DE-BAXTER-2024BAX021324

PATIENT
  Age: 17 Year
  Sex: Female
  Weight: 63.9 kg

DRUGS (132)
  1. METHOTREXATE [Suspect]
     Active Substance: METHOTREXATE
     Indication: Chemotherapy
     Dates: start: 20240522, end: 20240524
  2. METHOTREXATE [Suspect]
     Active Substance: METHOTREXATE
     Route: 042
     Dates: start: 20240522, end: 20240524
  3. METHOTREXATE [Suspect]
     Active Substance: METHOTREXATE
     Route: 042
     Dates: start: 20240522, end: 20240524
  4. METHOTREXATE [Suspect]
     Active Substance: METHOTREXATE
     Dates: start: 20240522, end: 20240524
  5. CYCLOPHOSPHAMIDE [Suspect]
     Active Substance: CYCLOPHOSPHAMIDE
     Indication: Chemotherapy
     Dosage: 358 MILLIGRAM, BID (TWICE A DAILY)
     Route: 042
     Dates: start: 20240523, end: 20240525
  6. CYCLOPHOSPHAMIDE [Suspect]
     Active Substance: CYCLOPHOSPHAMIDE
     Dosage: 358 MILLIGRAM, BID (TWICE A DAILY)
     Dates: start: 20240523, end: 20240525
  7. CYCLOPHOSPHAMIDE [Suspect]
     Active Substance: CYCLOPHOSPHAMIDE
     Dosage: 358 MILLIGRAM, BID (TWICE A DAILY)
     Dates: start: 20240523, end: 20240525
  8. CYCLOPHOSPHAMIDE [Suspect]
     Active Substance: CYCLOPHOSPHAMIDE
     Dosage: 358 MILLIGRAM, BID (TWICE A DAILY)
     Route: 042
     Dates: start: 20240523, end: 20240525
  9. CYCLOPHOSPHAMIDE [Suspect]
     Active Substance: CYCLOPHOSPHAMIDE
     Route: 042
     Dates: start: 20240523, end: 20240525
  10. CYCLOPHOSPHAMIDE [Suspect]
     Active Substance: CYCLOPHOSPHAMIDE
     Dates: start: 20240523, end: 20240525
  11. CYCLOPHOSPHAMIDE [Suspect]
     Active Substance: CYCLOPHOSPHAMIDE
     Dates: start: 20240523, end: 20240525
  12. CYCLOPHOSPHAMIDE [Suspect]
     Active Substance: CYCLOPHOSPHAMIDE
     Route: 042
     Dates: start: 20240523, end: 20240525
  13. VINCRISTINE SULFATE [Suspect]
     Active Substance: VINCRISTINE SULFATE
     Indication: Chemotherapy
     Route: 042
     Dates: start: 20240522, end: 20240527
  14. VINCRISTINE SULFATE [Suspect]
     Active Substance: VINCRISTINE SULFATE
     Dates: start: 20240522, end: 20240527
  15. VINCRISTINE SULFATE [Suspect]
     Active Substance: VINCRISTINE SULFATE
     Dates: start: 20240522, end: 20240527
  16. VINCRISTINE SULFATE [Suspect]
     Active Substance: VINCRISTINE SULFATE
     Route: 042
     Dates: start: 20240522, end: 20240527
  17. VINCRISTINE SULFATE [Suspect]
     Active Substance: VINCRISTINE SULFATE
     Route: 042
     Dates: start: 20240522, end: 20240527
  18. VINCRISTINE SULFATE [Suspect]
     Active Substance: VINCRISTINE SULFATE
     Dates: start: 20240522, end: 20240527
  19. VINCRISTINE SULFATE [Suspect]
     Active Substance: VINCRISTINE SULFATE
     Dates: start: 20240522, end: 20240527
  20. VINCRISTINE SULFATE [Suspect]
     Active Substance: VINCRISTINE SULFATE
     Route: 042
     Dates: start: 20240522, end: 20240527
  21. CYTARABINE [Suspect]
     Active Substance: CYTARABINE
     Indication: Chemotherapy
     Dosage: 3580 MILLIGRAM, BID
     Route: 042
     Dates: start: 20240526, end: 20240526
  22. CYTARABINE [Suspect]
     Active Substance: CYTARABINE
     Dosage: 3580 MILLIGRAM, BID
     Dates: start: 20240526, end: 20240526
  23. CYTARABINE [Suspect]
     Active Substance: CYTARABINE
     Dosage: 3580 MILLIGRAM, BID
     Dates: start: 20240526, end: 20240526
  24. CYTARABINE [Suspect]
     Active Substance: CYTARABINE
     Dosage: 3580 MILLIGRAM, BID
     Route: 042
     Dates: start: 20240526, end: 20240526
  25. CYTARABINE [Suspect]
     Active Substance: CYTARABINE
     Route: 042
     Dates: start: 20240526, end: 20240526
  26. CYTARABINE [Suspect]
     Active Substance: CYTARABINE
     Dates: start: 20240526, end: 20240526
  27. CYTARABINE [Suspect]
     Active Substance: CYTARABINE
     Dates: start: 20240526, end: 20240526
  28. CYTARABINE [Suspect]
     Active Substance: CYTARABINE
     Route: 042
     Dates: start: 20240526, end: 20240526
  29. PEGASPARGASE [Concomitant]
     Active Substance: PEGASPARGASE
     Indication: Chemotherapy
     Dates: start: 20240527, end: 20240527
  30. PEGASPARGASE [Concomitant]
     Active Substance: PEGASPARGASE
     Route: 042
     Dates: start: 20240527, end: 20240527
  31. PEGASPARGASE [Concomitant]
     Active Substance: PEGASPARGASE
     Route: 042
     Dates: start: 20240527, end: 20240527
  32. PEGASPARGASE [Concomitant]
     Active Substance: PEGASPARGASE
     Dates: start: 20240527, end: 20240527
  33. DEXAMETHASONE [Concomitant]
     Active Substance: DEXAMETHASONE
     Indication: Chemotherapy
     Dosage: 9 MILLIGRAM, BID ( TWICE DAILY)
     Dates: start: 20240522, end: 20240527
  34. DEXAMETHASONE [Concomitant]
     Active Substance: DEXAMETHASONE
     Dosage: 9 MILLIGRAM, BID ( TWICE DAILY)
     Route: 042
     Dates: start: 20240522, end: 20240527
  35. DEXAMETHASONE [Concomitant]
     Active Substance: DEXAMETHASONE
     Dosage: 9 MILLIGRAM, BID ( TWICE DAILY)
     Route: 042
     Dates: start: 20240522, end: 20240527
  36. DEXAMETHASONE [Concomitant]
     Active Substance: DEXAMETHASONE
     Dosage: 9 MILLIGRAM, BID ( TWICE DAILY)
     Dates: start: 20240522, end: 20240527
  37. INOTUZUMAB OZOGAMICIN [Concomitant]
     Active Substance: INOTUZUMAB OZOGAMICIN
     Indication: Leukaemia recurrent
     Dosage: 0.94 MILLIGRAM, QW
     Dates: start: 20240422, end: 20240506
  38. INOTUZUMAB OZOGAMICIN [Concomitant]
     Active Substance: INOTUZUMAB OZOGAMICIN
     Dosage: 0.94 MILLIGRAM, QW
     Route: 042
     Dates: start: 20240422, end: 20240506
  39. INOTUZUMAB OZOGAMICIN [Concomitant]
     Active Substance: INOTUZUMAB OZOGAMICIN
     Dosage: 0.94 MILLIGRAM, QW
     Route: 042
     Dates: start: 20240422, end: 20240506
  40. INOTUZUMAB OZOGAMICIN [Concomitant]
     Active Substance: INOTUZUMAB OZOGAMICIN
     Dosage: 0.94 MILLIGRAM, QW
     Dates: start: 20240422, end: 20240506
  41. AMBISOME [Concomitant]
     Active Substance: AMPHOTERICIN B
     Indication: Antifungal prophylaxis
     Dosage: 200 MILLIGRAM, ONCE WEEKLY
     Route: 042
     Dates: start: 20240419, end: 20240507
  42. AMBISOME [Concomitant]
     Active Substance: AMPHOTERICIN B
     Indication: Leukaemia recurrent
     Dosage: 200 MILLIGRAM, ONCE WEEKLY
     Dates: start: 20240419, end: 20240507
  43. AMBISOME [Concomitant]
     Active Substance: AMPHOTERICIN B
     Indication: Antifungal prophylaxis
     Dosage: 200 MILLIGRAM, ONCE WEEKLY
     Dates: start: 20240419, end: 20240507
  44. AMBISOME [Concomitant]
     Active Substance: AMPHOTERICIN B
     Dosage: 200 MILLIGRAM, ONCE WEEKLY
     Route: 042
     Dates: start: 20240419, end: 20240507
  45. AMBISOME [Concomitant]
     Active Substance: AMPHOTERICIN B
     Route: 042
     Dates: start: 20240604, end: 20240607
  46. AMBISOME [Concomitant]
     Active Substance: AMPHOTERICIN B
     Dates: start: 20240604, end: 20240607
  47. AMBISOME [Concomitant]
     Active Substance: AMPHOTERICIN B
     Dates: start: 20240604, end: 20240607
  48. AMBISOME [Concomitant]
     Active Substance: AMPHOTERICIN B
     Route: 042
     Dates: start: 20240604, end: 20240607
  49. AMBISOME [Concomitant]
     Active Substance: AMPHOTERICIN B
     Route: 042
  50. AMBISOME [Concomitant]
     Active Substance: AMPHOTERICIN B
     Route: 042
  51. AMBISOME [Concomitant]
     Active Substance: AMPHOTERICIN B
  52. AMBISOME [Concomitant]
     Active Substance: AMPHOTERICIN B
  53. COTRIM [Concomitant]
     Active Substance: SULFAMETHOXAZOLE\TRIMETHOPRIM
     Indication: Infection prophylaxis
     Route: 048
  54. COTRIM [Concomitant]
     Active Substance: SULFAMETHOXAZOLE\TRIMETHOPRIM
  55. COTRIM [Concomitant]
     Active Substance: SULFAMETHOXAZOLE\TRIMETHOPRIM
  56. COTRIM [Concomitant]
     Active Substance: SULFAMETHOXAZOLE\TRIMETHOPRIM
     Route: 048
  57. COTRIM [Concomitant]
     Active Substance: SULFAMETHOXAZOLE\TRIMETHOPRIM
  58. COTRIM [Concomitant]
     Active Substance: SULFAMETHOXAZOLE\TRIMETHOPRIM
  59. COTRIM [Concomitant]
     Active Substance: SULFAMETHOXAZOLE\TRIMETHOPRIM
     Route: 048
  60. COTRIM [Concomitant]
     Active Substance: SULFAMETHOXAZOLE\TRIMETHOPRIM
     Route: 048
  61. COTRIM [Concomitant]
     Active Substance: SULFAMETHOXAZOLE\TRIMETHOPRIM
     Route: 048
  62. COTRIM [Concomitant]
     Active Substance: SULFAMETHOXAZOLE\TRIMETHOPRIM
  63. COTRIM [Concomitant]
     Active Substance: SULFAMETHOXAZOLE\TRIMETHOPRIM
  64. COTRIM [Concomitant]
     Active Substance: SULFAMETHOXAZOLE\TRIMETHOPRIM
     Route: 048
  65. VANCOMYCIN [Concomitant]
     Active Substance: VANCOMYCIN
     Indication: Leukaemia recurrent
     Dosage: 500 MILLIGRAM, QD, ONCE DAILY
     Dates: start: 20240428, end: 20240501
  66. VANCOMYCIN [Concomitant]
     Active Substance: VANCOMYCIN
     Dosage: 500 MILLIGRAM, QD, ONCE DAILY
     Dates: start: 20240428, end: 20240501
  67. VANCOMYCIN [Concomitant]
     Active Substance: VANCOMYCIN
     Dosage: 500 MILLIGRAM, QD, ONCE DAILY
     Route: 065
     Dates: start: 20240428, end: 20240501
  68. VANCOMYCIN [Concomitant]
     Active Substance: VANCOMYCIN
     Dosage: 500 MILLIGRAM, QD, ONCE DAILY
     Route: 065
     Dates: start: 20240428, end: 20240501
  69. VANCOMYCIN [Concomitant]
     Active Substance: VANCOMYCIN
     Dosage: 500 MILLIGRAM, BID, TWICE DAILY
     Dates: start: 20240502, end: 20240502
  70. VANCOMYCIN [Concomitant]
     Active Substance: VANCOMYCIN
     Dosage: 500 MILLIGRAM, BID, TWICE DAILY
     Dates: start: 20240502, end: 20240502
  71. VANCOMYCIN [Concomitant]
     Active Substance: VANCOMYCIN
     Dosage: 500 MILLIGRAM, BID, TWICE DAILY
     Route: 065
     Dates: start: 20240502, end: 20240502
  72. VANCOMYCIN [Concomitant]
     Active Substance: VANCOMYCIN
     Dosage: 500 MILLIGRAM, BID, TWICE DAILY
     Route: 065
     Dates: start: 20240502, end: 20240502
  73. COTRIMOXAZOLE [Concomitant]
     Active Substance: SULFAMETHOXAZOLE\TRIMETHOPRIM
     Indication: Leukaemia recurrent
     Dosage: 160 MILLIGRAM, TWICE WEEKLY
     Dates: start: 20240420, end: 20240505
  74. COTRIMOXAZOLE [Concomitant]
     Active Substance: SULFAMETHOXAZOLE\TRIMETHOPRIM
     Dosage: 160 MILLIGRAM, TWICE WEEKLY
     Route: 048
     Dates: start: 20240420, end: 20240505
  75. COTRIMOXAZOLE [Concomitant]
     Active Substance: SULFAMETHOXAZOLE\TRIMETHOPRIM
     Dosage: 160 MILLIGRAM, TWICE WEEKLY
     Route: 048
     Dates: start: 20240420, end: 20240505
  76. COTRIMOXAZOLE [Concomitant]
     Active Substance: SULFAMETHOXAZOLE\TRIMETHOPRIM
     Dosage: 160 MILLIGRAM, TWICE WEEKLY
     Dates: start: 20240420, end: 20240505
  77. OMEPRAZOLE [Concomitant]
     Active Substance: OMEPRAZOLE
     Indication: Leukaemia recurrent
     Dosage: 20 MILLIGRAM, QD
     Dates: start: 20240418, end: 20240501
  78. OMEPRAZOLE [Concomitant]
     Active Substance: OMEPRAZOLE
     Dosage: 20 MILLIGRAM, QD
     Route: 065
     Dates: start: 20240418, end: 20240501
  79. OMEPRAZOLE [Concomitant]
     Active Substance: OMEPRAZOLE
     Dosage: 20 MILLIGRAM, QD
     Route: 065
     Dates: start: 20240418, end: 20240501
  80. OMEPRAZOLE [Concomitant]
     Active Substance: OMEPRAZOLE
     Dosage: 20 MILLIGRAM, QD
     Dates: start: 20240418, end: 20240501
  81. PIPERACILLIN SODIUM\TAZOBACTAM SODIUM [Concomitant]
     Active Substance: PIPERACILLIN SODIUM\TAZOBACTAM SODIUM
     Indication: Leukaemia recurrent
     Dosage: 4 GRAM, QD
     Dates: start: 20240503, end: 20240503
  82. PIPERACILLIN SODIUM\TAZOBACTAM SODIUM [Concomitant]
     Active Substance: PIPERACILLIN SODIUM\TAZOBACTAM SODIUM
     Dosage: 4 GRAM, QD
     Dates: start: 20240503, end: 20240503
  83. PIPERACILLIN SODIUM\TAZOBACTAM SODIUM [Concomitant]
     Active Substance: PIPERACILLIN SODIUM\TAZOBACTAM SODIUM
     Dosage: 4 GRAM, QD
     Route: 065
     Dates: start: 20240503, end: 20240503
  84. PIPERACILLIN SODIUM\TAZOBACTAM SODIUM [Concomitant]
     Active Substance: PIPERACILLIN SODIUM\TAZOBACTAM SODIUM
     Dosage: 4 GRAM, QD
     Route: 065
     Dates: start: 20240503, end: 20240503
  85. PIPERACILLIN SODIUM\TAZOBACTAM SODIUM [Concomitant]
     Active Substance: PIPERACILLIN SODIUM\TAZOBACTAM SODIUM
     Dosage: 4 GRAM, TID
     Dates: start: 20240423, end: 20240502
  86. PIPERACILLIN SODIUM\TAZOBACTAM SODIUM [Concomitant]
     Active Substance: PIPERACILLIN SODIUM\TAZOBACTAM SODIUM
     Dosage: 4 GRAM, TID
     Dates: start: 20240423, end: 20240502
  87. PIPERACILLIN SODIUM\TAZOBACTAM SODIUM [Concomitant]
     Active Substance: PIPERACILLIN SODIUM\TAZOBACTAM SODIUM
     Dosage: 4 GRAM, TID
     Route: 065
     Dates: start: 20240423, end: 20240502
  88. PIPERACILLIN SODIUM\TAZOBACTAM SODIUM [Concomitant]
     Active Substance: PIPERACILLIN SODIUM\TAZOBACTAM SODIUM
     Dosage: 4 GRAM, TID
     Route: 065
     Dates: start: 20240423, end: 20240502
  89. LACTULOSE [Concomitant]
     Active Substance: LACTULOSE
     Indication: Leukaemia recurrent
     Dosage: 5 MILLILITER, QD
     Dates: start: 20240503, end: 20240505
  90. LACTULOSE [Concomitant]
     Active Substance: LACTULOSE
     Dosage: 5 MILLILITER, QD
     Route: 048
     Dates: start: 20240503, end: 20240505
  91. LACTULOSE [Concomitant]
     Active Substance: LACTULOSE
     Dosage: 5 MILLILITER, QD
     Route: 048
     Dates: start: 20240503, end: 20240505
  92. LACTULOSE [Concomitant]
     Active Substance: LACTULOSE
     Dosage: 5 MILLILITER, QD
     Dates: start: 20240503, end: 20240505
  93. LACTULOSE [Concomitant]
     Active Substance: LACTULOSE
     Dosage: 5 MILLILITER, BID
     Route: 048
     Dates: start: 20240506, end: 20240506
  94. LACTULOSE [Concomitant]
     Active Substance: LACTULOSE
     Dosage: 5 MILLILITER, BID
     Route: 048
     Dates: start: 20240506, end: 20240506
  95. LACTULOSE [Concomitant]
     Active Substance: LACTULOSE
     Dosage: 5 MILLILITER, BID
     Dates: start: 20240506, end: 20240506
  96. LACTULOSE [Concomitant]
     Active Substance: LACTULOSE
     Dosage: 5 MILLILITER, BID
     Dates: start: 20240506, end: 20240506
  97. LACTULOSE [Concomitant]
     Active Substance: LACTULOSE
     Dosage: 5 MILLILITER, QD
     Dates: start: 20240507, end: 20240507
  98. LACTULOSE [Concomitant]
     Active Substance: LACTULOSE
     Dosage: 5 MILLILITER, QD
     Route: 048
     Dates: start: 20240507, end: 20240507
  99. LACTULOSE [Concomitant]
     Active Substance: LACTULOSE
     Dosage: 5 MILLILITER, QD
     Dates: start: 20240507, end: 20240507
  100. LACTULOSE [Concomitant]
     Active Substance: LACTULOSE
     Dosage: 5 MILLILITER, QD
     Route: 048
     Dates: start: 20240507, end: 20240507
  101. ACETAMINOPHEN [Concomitant]
     Active Substance: ACETAMINOPHEN
     Indication: Leukaemia recurrent
     Dosage: 500 MILLIGRAM, BID
     Dates: start: 20240429, end: 20240501
  102. ACETAMINOPHEN [Concomitant]
     Active Substance: ACETAMINOPHEN
     Dosage: 500 MILLIGRAM, BID
     Dates: start: 20240429, end: 20240501
  103. ACETAMINOPHEN [Concomitant]
     Active Substance: ACETAMINOPHEN
     Dosage: 500 MILLIGRAM, BID
     Route: 065
     Dates: start: 20240429, end: 20240501
  104. ACETAMINOPHEN [Concomitant]
     Active Substance: ACETAMINOPHEN
     Dosage: 500 MILLIGRAM, BID
     Route: 065
     Dates: start: 20240429, end: 20240501
  105. ACETAMINOPHEN [Concomitant]
     Active Substance: ACETAMINOPHEN
     Dosage: 500 MILLIGRAM, TID
     Route: 065
     Dates: start: 20240502, end: 20240502
  106. ACETAMINOPHEN [Concomitant]
     Active Substance: ACETAMINOPHEN
     Dosage: 500 MILLIGRAM, TID
     Dates: start: 20240502, end: 20240502
  107. ACETAMINOPHEN [Concomitant]
     Active Substance: ACETAMINOPHEN
     Dosage: 500 MILLIGRAM, TID
     Dates: start: 20240502, end: 20240502
  108. ACETAMINOPHEN [Concomitant]
     Active Substance: ACETAMINOPHEN
     Dosage: 500 MILLIGRAM, TID
     Route: 065
     Dates: start: 20240502, end: 20240502
  109. ACETAMINOPHEN [Concomitant]
     Active Substance: ACETAMINOPHEN
     Dosage: 500 MILLIGRAM, BID
     Dates: start: 20240503, end: 20240503
  110. ACETAMINOPHEN [Concomitant]
     Active Substance: ACETAMINOPHEN
     Dosage: 500 MILLIGRAM, BID
     Dates: start: 20240503, end: 20240503
  111. ACETAMINOPHEN [Concomitant]
     Active Substance: ACETAMINOPHEN
     Dosage: 500 MILLIGRAM, BID
     Route: 065
     Dates: start: 20240503, end: 20240503
  112. ACETAMINOPHEN [Concomitant]
     Active Substance: ACETAMINOPHEN
     Dosage: 500 MILLIGRAM, BID
     Route: 065
     Dates: start: 20240503, end: 20240503
  113. ACETAMINOPHEN [Concomitant]
     Active Substance: ACETAMINOPHEN
     Dosage: 500 MILLIGRAM, QD
     Route: 065
     Dates: start: 20240504, end: 20240504
  114. ACETAMINOPHEN [Concomitant]
     Active Substance: ACETAMINOPHEN
     Dosage: 500 MILLIGRAM, QD
     Dates: start: 20240504, end: 20240504
  115. ACETAMINOPHEN [Concomitant]
     Active Substance: ACETAMINOPHEN
     Dosage: 500 MILLIGRAM, QD
     Dates: start: 20240504, end: 20240504
  116. ACETAMINOPHEN [Concomitant]
     Active Substance: ACETAMINOPHEN
     Dosage: 500 MILLIGRAM, QD
     Route: 065
     Dates: start: 20240504, end: 20240504
  117. CASPOFUNGIN [Concomitant]
     Active Substance: CASPOFUNGIN
     Indication: Leukaemia recurrent
     Dosage: 50 MILLIGRAM, QD, ONCE DAILY
     Dates: start: 20240502, end: 20240506
  118. CASPOFUNGIN [Concomitant]
     Active Substance: CASPOFUNGIN
     Dosage: 50 MILLIGRAM, QD, ONCE DAILY
     Dates: start: 20240502, end: 20240506
  119. CASPOFUNGIN [Concomitant]
     Active Substance: CASPOFUNGIN
     Dosage: 50 MILLIGRAM, QD, ONCE DAILY
     Route: 065
     Dates: start: 20240502, end: 20240506
  120. CASPOFUNGIN [Concomitant]
     Active Substance: CASPOFUNGIN
     Dosage: 50 MILLIGRAM, QD, ONCE DAILY
     Route: 065
     Dates: start: 20240502, end: 20240506
  121. CASPOFUNGIN [Concomitant]
     Active Substance: CASPOFUNGIN
     Dosage: 70 MILLIGRAM, QD, ONCE DAILY
     Dates: start: 20240501, end: 20240501
  122. CASPOFUNGIN [Concomitant]
     Active Substance: CASPOFUNGIN
     Dosage: 70 MILLIGRAM, QD, ONCE DAILY
     Dates: start: 20240501, end: 20240501
  123. CASPOFUNGIN [Concomitant]
     Active Substance: CASPOFUNGIN
     Dosage: 70 MILLIGRAM, QD, ONCE DAILY
     Route: 065
     Dates: start: 20240501, end: 20240501
  124. CASPOFUNGIN [Concomitant]
     Active Substance: CASPOFUNGIN
     Dosage: 70 MILLIGRAM, QD, ONCE DAILY
     Route: 065
     Dates: start: 20240501, end: 20240501
  125. ONDANSETRON [Concomitant]
     Active Substance: ONDANSETRON
     Indication: Leukaemia recurrent
     Dosage: 8 MILLIGRAM, BID
     Dates: start: 20240429, end: 20240429
  126. ONDANSETRON [Concomitant]
     Active Substance: ONDANSETRON
     Dosage: 8 MILLIGRAM, BID
     Route: 065
     Dates: start: 20240429, end: 20240429
  127. ONDANSETRON [Concomitant]
     Active Substance: ONDANSETRON
     Dosage: 8 MILLIGRAM, BID
     Route: 065
     Dates: start: 20240429, end: 20240429
  128. ONDANSETRON [Concomitant]
     Active Substance: ONDANSETRON
     Dosage: 8 MILLIGRAM, BID
     Dates: start: 20240429, end: 20240429
  129. POTASSIUM CHLORIDE [Concomitant]
     Active Substance: POTASSIUM CHLORIDE
     Indication: Leukaemia recurrent
     Dates: start: 20240428, end: 20240503
  130. POTASSIUM CHLORIDE [Concomitant]
     Active Substance: POTASSIUM CHLORIDE
     Route: 048
     Dates: start: 20240428, end: 20240503
  131. POTASSIUM CHLORIDE [Concomitant]
     Active Substance: POTASSIUM CHLORIDE
     Route: 048
     Dates: start: 20240428, end: 20240503
  132. POTASSIUM CHLORIDE [Concomitant]
     Active Substance: POTASSIUM CHLORIDE
     Dates: start: 20240428, end: 20240503

REACTIONS (3)
  - Bone marrow failure [Recovered/Resolved]
  - Mucosal inflammation [Recovered/Resolved]
  - Oral herpes [Unknown]

NARRATIVE: CASE EVENT DATE: 20240529
